FAERS Safety Report 6475837-8 (Version None)
Quarter: 2009Q4

REPORT INFORMATION
  Report Type: 
  Country: None (occurrence: None)
  Receive Date: 20091204
  Receipt Date: 20091123
  Transmission Date: 20100525
  Serious: Yes (Hospitalization)
  Sender: FDA-Public Use
  Company Number: US-PFIZER INC-2009304601

PATIENT
  Age: 67 Year
  Sex: Male

DRUGS (3)
  1. DOXORUBICIN HCL [Suspect]
     Dosage: UNK
  2. CISPLATIN TEVA [Suspect]
     Dosage: UNK
     Route: 042
  3. MITOMYCIN [Suspect]

REACTIONS (2)
  - BILIARY FISTULA [None]
  - ISCHAEMIC ULCER [None]
